FAERS Safety Report 7009487-1 (Version None)
Quarter: 2010Q3

REPORT INFORMATION
  Report Type: 
  Country: None (occurrence: None)
  Receive Date: 20100923
  Receipt Date: 20100909
  Transmission Date: 20110219
  Serious: Yes (Other)
  Sender: FDA-Public Use
  Company Number: PHHY2010KR58823

PATIENT
  Age: 72 Year
  Sex: Male
  Weight: 52 kg

DRUGS (3)
  1. IMATINIB [Suspect]
     Indication: GASTROINTESTINAL STROMAL TUMOUR
     Dosage: 200 MG, UNK
  2. DEXAMETHASONE [Concomitant]
     Indication: HYPOGLYCAEMIA
     Dosage: 1 MG/ DAY
     Route: 048
  3. ANTIHYPERTENSIVES [Concomitant]

REACTIONS (4)
  - DRUG RESISTANCE [None]
  - HEPATIC MASS [None]
  - HYPOGLYCAEMIA [None]
  - INSULIN-LIKE GROWTH FACTOR INCREASED [None]
